FAERS Safety Report 24437128 (Version 1)
Quarter: 2024Q4

REPORT INFORMATION
  Report Type: Spontaneous
  Country: US (occurrence: None)
  Receive Date: 20241011
  Receipt Date: 20241011
  Transmission Date: 20250115
  Serious: Yes (Hospitalization)
  Sender: Public
  Company Number: None

PATIENT
  Age: 73 Year
  Sex: Male

DRUGS (1)
  1. AVIBACTAM SODIUM\CEFTAZIDIME [Suspect]
     Active Substance: AVIBACTAM SODIUM\CEFTAZIDIME
     Indication: Infection
     Dates: start: 20240602, end: 20240609

REACTIONS (7)
  - Hypertransaminasaemia [None]
  - Urosepsis [None]
  - Candida infection [None]
  - Drug-induced liver injury [None]
  - Autoimmune hepatitis [None]
  - Disease complication [None]
  - Hepatic cirrhosis [None]

NARRATIVE: CASE EVENT DATE: 20240628
